FAERS Safety Report 17809442 (Version 1)
Quarter: 2020Q2

REPORT INFORMATION
  Report Type: Spontaneous
  Country: FR (occurrence: FR)
  Receive Date: 20200521
  Receipt Date: 20200521
  Transmission Date: 20200714
  Serious: Yes (Other)
  Sender: FDA-Public Use
  Company Number: FR-AUROBINDO-AUR-APL-2020-025271

PATIENT
  Age: 61 Year
  Sex: Female
  Weight: 63 kg

DRUGS (3)
  1. AMOXICILLIN. [Suspect]
     Active Substance: AMOXICILLIN
     Indication: CORONAVIRUS INFECTION
     Dosage: 3 GRAM
     Route: 048
     Dates: start: 20200325
  2. CLAVULANIC ACID [Suspect]
     Active Substance: CLAVULANIC ACID
     Indication: CORONAVIRUS INFECTION
     Dosage: 600 MILLIGRAM
     Route: 048
     Dates: start: 20200325
  3. PLAQUENIL [Suspect]
     Active Substance: HYDROXYCHLOROQUINE SULFATE
     Indication: CORONAVIRUS INFECTION
     Dosage: 600 MILLIGRAM
     Route: 048
     Dates: start: 20200325

REACTIONS (1)
  - Electrocardiogram QT prolonged [Recovered/Resolved]

NARRATIVE: CASE EVENT DATE: 20200329
